FAERS Safety Report 14389683 (Version 1)
Quarter: 2018Q1

REPORT INFORMATION
  Report Type: Report from Study
  Country: None (occurrence: CA)
  Receive Date: 20180115
  Receipt Date: 20180115
  Transmission Date: 20180509
  Serious: Yes (Death, Hospitalization)
  Sender: FDA-Public Use
  Company Number: CA-ABBVIE-17P-028-2184197-00

PATIENT
  Age: 69 Year
  Sex: Male

DRUGS (2)
  1. ALLOPURINOL. [Concomitant]
     Active Substance: ALLOPURINOL
     Indication: PRODUCT USED FOR UNKNOWN INDICATION
  2. VENCLEXTA [Suspect]
     Active Substance: VENETOCLAX
     Indication: CHRONIC LYMPHOCYTIC LEUKAEMIA
     Route: 048
     Dates: start: 20170517, end: 20171116

REACTIONS (5)
  - Disease progression [Not Recovered/Not Resolved]
  - Surgery [Unknown]
  - Renal failure [Fatal]
  - Lymphoma [Fatal]
  - Spleen disorder [Unknown]

NARRATIVE: CASE EVENT DATE: 201712
